FAERS Safety Report 5238630-X (Version None)
Quarter: 2007Q1

REPORT INFORMATION
  Report Type: 
  Country: None (occurrence: None)
  Receive Date: 20070215
  Receipt Date: 20070205
  Transmission Date: 20070707
  Serious: Yes (Other)
  Sender: FDA-Public Use
  Company Number: JP-ELI_LILLY_AND_COMPANY-JP200612000472

PATIENT
  Age: 72 Year
  Sex: Female

DRUGS (3)
  1. EVISTA [Suspect]
     Dosage: UNK, UNK
     Route: 048
     Dates: start: 20050426
  2. ALFAROL [Concomitant]
     Dosage: 1 UG, DAILY (1/D)
     Route: 048
     Dates: start: 20050426
  3. TERNELIN [Concomitant]
     Dosage: 3 MG, DAILY (1/D)
     Route: 048
     Dates: start: 20050912

REACTIONS (1)
  - OSTEONECROSIS [None]
